FAERS Safety Report 7563508-6 (Version None)
Quarter: 2011Q2

REPORT INFORMATION
  Report Type: 
  Country: None (occurrence: None)
  Receive Date: 20110622
  Receipt Date: 20110621
  Transmission Date: 20111010
  Serious: Yes (Death)
  Sender: FDA-Public Use
  Company Number: HN-PFIZER INC-2011135208

PATIENT
  Age: 53 Year
  Sex: Female

DRUGS (1)
  1. TYGACIL [Suspect]
     Indication: KLEBSIELLA TEST POSITIVE
     Dosage: 100 MG, UNK

REACTIONS (1)
  - INTESTINAL PERFORATION [None]
